FAERS Safety Report 13126708 (Version 1)
Quarter: 2017Q1

REPORT INFORMATION
  Report Type: Spontaneous
  Country: US (occurrence: US)
  Receive Date: 20170118
  Receipt Date: 20170118
  Transmission Date: 20170428
  Serious: No
  Sender: FDA-Public Use
  Company Number: US-ROCHE-1724489

PATIENT
  Age: 76 Year
  Sex: Female
  Weight: 64.8 kg

DRUGS (21)
  1. BENICAR [Concomitant]
     Active Substance: OLMESARTAN MEDOXOMIL
  2. INDERAL LA [Concomitant]
     Active Substance: PROPRANOLOL HYDROCHLORIDE
  3. RITUXAN [Suspect]
     Active Substance: RITUXIMAB
     Dosage: 500/M2 X 4 DOSES
     Route: 042
  4. LESCOL [Concomitant]
     Active Substance: FLUVASTATIN SODIUM
  5. THERATEARS [Concomitant]
     Active Substance: CARBOXYMETHYLCELLULOSE SODIUM
  6. REFRESH P.M. [Concomitant]
     Active Substance: MINERAL OIL\PETROLATUM
     Route: 065
  7. PLAQUENIL [Concomitant]
     Active Substance: HYDROXYCHLOROQUINE SULFATE
  8. ZETIA [Concomitant]
     Active Substance: EZETIMIBE
  9. CALTRATE [Concomitant]
     Active Substance: CALCIUM CARBONATE
  10. EVOXAC [Concomitant]
     Active Substance: CEVIMELINE HYDROCHLORIDE
  11. RITUXAN [Suspect]
     Active Substance: RITUXIMAB
     Dosage: 500/M2 X 3 DOSES
     Route: 042
  12. MEDROL [Concomitant]
     Active Substance: METHYLPREDNISOLONE
  13. HYDROCHLOROTHIAZIDE. [Concomitant]
     Active Substance: HYDROCHLOROTHIAZIDE
  14. IMBRUVICA [Concomitant]
     Active Substance: IBRUTINIB
  15. RITUXAN [Suspect]
     Active Substance: RITUXIMAB
     Indication: CHRONIC LYMPHOCYTIC LEUKAEMIA
     Dosage: 375/M2
     Route: 042
     Dates: start: 20160127
  16. ZYDELIG [Concomitant]
     Active Substance: IDELALISIB
     Route: 048
     Dates: start: 20160401
  17. ZYDELIG [Concomitant]
     Active Substance: IDELALISIB
     Indication: CHRONIC LYMPHOCYTIC LEUKAEMIA
     Route: 048
     Dates: start: 20160127, end: 20160304
  18. ADVIL [Concomitant]
     Active Substance: IBUPROFEN
  19. OMEGA 3 [Concomitant]
     Active Substance: OMEGA-3 FATTY ACIDS
  20. LOTEMAX [Concomitant]
     Active Substance: LOTEPREDNOL ETABONATE
  21. ASPRIN [Concomitant]
     Active Substance: ASPIRIN

REACTIONS (3)
  - Pruritus [Unknown]
  - Liver function test increased [Recovered/Resolved]
  - Skin ulcer [Unknown]

NARRATIVE: CASE EVENT DATE: 20160303
